FAERS Safety Report 23661346 (Version 1)
Quarter: 2024Q1

REPORT INFORMATION
  Report Type: Spontaneous
  Country: US (occurrence: US)
  Receive Date: 20240322
  Receipt Date: 20240322
  Transmission Date: 20240409
  Serious: Yes (Disabling)
  Sender: FDA-Public Use
  Company Number: US-DRL-USA-LIT/USA/24/0004598

PATIENT
  Sex: Female

DRUGS (4)
  1. LEVETIRACETAM [Suspect]
     Active Substance: LEVETIRACETAM
     Indication: Partial seizures
  2. LAMOTRIGINE [Suspect]
     Active Substance: LAMOTRIGINE
     Indication: Partial seizures
     Dates: start: 2012
  3. ZONISAMIDE [Suspect]
     Active Substance: ZONISAMIDE
     Indication: Partial seizures
     Dosage: 100MG
  4. ZONISAMIDE [Suspect]
     Active Substance: ZONISAMIDE
     Dosage: 400MG
     Dates: start: 201201

REACTIONS (2)
  - Hereditary optic atrophy [Unknown]
  - Drug ineffective [Unknown]
